FAERS Safety Report 21312400 (Version 1)
Quarter: 2022Q3

REPORT INFORMATION
  Report Type: Other
  Country: AU (occurrence: AU)
  Receive Date: 20220909
  Receipt Date: 20220909
  Transmission Date: 20221026
  Serious: Yes (Other)
  Sender: FDA-Public Use
  Company Number: AU-ASTELLAS-2022US031899

PATIENT
  Age: 41 Year
  Sex: Female

DRUGS (3)
  1. TACROLIMUS [Suspect]
     Active Substance: TACROLIMUS
     Indication: Product used for unknown indication
     Dosage: UNK UNK, UNKNOWN FREQ.
     Route: 065
  2. METHYLPREDNISOLONE [Suspect]
     Active Substance: METHYLPREDNISOLONE
     Indication: Product used for unknown indication
     Dosage: UNK UNK, UNKNOWN FREQ.
     Route: 065
  3. MYCOPHENOLATE MOFETIL [Suspect]
     Active Substance: MYCOPHENOLATE MOFETIL
     Indication: Product used for unknown indication
     Dosage: UNK UNK, UNKNOWN FREQ.
     Route: 065

REACTIONS (14)
  - Graft versus host disease in gastrointestinal tract [Unknown]
  - Colitis [Unknown]
  - Cystitis haemorrhagic [Unknown]
  - Cytomegalovirus viraemia [Unknown]
  - Delayed graft function [Unknown]
  - Diarrhoea [Unknown]
  - Microangiopathy [Unknown]
  - Mucosal haemorrhage [Unknown]
  - Mucosal inflammation [Unknown]
  - Rash [Unknown]
  - Ulcer [Unknown]
  - Weight decreased [Unknown]
  - Treatment failure [Unknown]
  - Product use in unapproved indication [Unknown]
